FAERS Safety Report 13190643 (Version 5)
Quarter: 2017Q2

REPORT INFORMATION
  Report Type: Spontaneous
  Country: US (occurrence: US)
  Receive Date: 20170206
  Receipt Date: 20170407
  Transmission Date: 20170830
  Serious: Yes (Death, Hospitalization)
  Sender: FDA-Public Use
  Company Number: US-ACTELION-A-NJ2017-149544

PATIENT
  Age: 44 Year
  Sex: Female
  Weight: 48.98 kg

DRUGS (3)
  1. VELETRI [Suspect]
     Active Substance: EPOPROSTENOL
     Indication: PULMONARY ARTERIAL HYPERTENSION
     Dosage: 100 NG/KG, PER MIN
     Route: 042
     Dates: start: 20100521, end: 20170205
  2. SILDENAFIL. [Concomitant]
     Active Substance: SILDENAFIL
     Indication: PULMONARY ARTERIAL HYPERTENSION
  3. VELETRI [Suspect]
     Active Substance: EPOPROSTENOL
     Dosage: UNK
     Route: 042
     Dates: start: 2007

REACTIONS (7)
  - Complication of device removal [Fatal]
  - Pulmonary arterial hypertension [Fatal]
  - Disease complication [Fatal]
  - Device breakage [Fatal]
  - Cardiac arrest [Fatal]
  - Unresponsive to stimuli [Unknown]
  - Ventricular tachycardia [Fatal]

NARRATIVE: CASE EVENT DATE: 20170130
